FAERS Safety Report 6933050-1 (Version None)
Quarter: 2010Q3

REPORT INFORMATION
  Report Type: 
  Country: None (occurrence: None)
  Receive Date: 20100818
  Receipt Date: 20100818
  Transmission Date: 20110219
  Serious: Yes (Life-Threatening, Hospitalization)
  Sender: FDA-Public Use
  Company Number: None

PATIENT
  Age: 57 Year
  Sex: Male
  Weight: 72.66 kg

DRUGS (10)
  1. ALTEPLASE 100MG GENENTECH [Suspect]
     Indication: PULMONARY EMBOLISM
     Dosage: 100MG ONCE INTRAVENOUS
     Route: 042
     Dates: start: 20100310
  2. HEPARIN [Suspect]
     Indication: PULMONARY EMBOLISM
     Dosage: 18 JUNIT/KG/HOUR - 1550 UNITS/HR CONTINUOUS INTRABENOUS INFUSION
     Dates: start: 20100319, end: 20100322
  3. DOCUSATE SODIUM [Concomitant]
  4. FAMOTIDINE [Concomitant]
  5. HYDROCODONE BITARTRATE AND ACETAMINOPHEN [Concomitant]
  6. INSULIIN [Concomitant]
  7. ALBUTEROL/IPRATROPIUM NEBULIZER [Concomitant]
  8. MORPHINE [Concomitant]
  9. SENNOSIDE [Concomitant]
  10. SULFAMETHOXAZOLE AND TRIMETHOPRIM [Concomitant]

REACTIONS (5)
  - HAEMORRHAGIC ANAEMIA [None]
  - INTRA-ABDOMINAL HAEMATOMA [None]
  - PELVIC FLUID COLLECTION [None]
  - RECTAL HAEMORRHAGE [None]
  - SHOCK [None]
